FAERS Safety Report 5581672-5 (Version None)
Quarter: 2008Q1

REPORT INFORMATION
  Report Type: 
  Country: None (occurrence: None)
  Receive Date: 20080104
  Receipt Date: 20070712
  Transmission Date: 20080703
  Serious: Yes (Other)
  Sender: FDA-Public Use
  Company Number: GR-ASTRAZENECA-2007SE02725

PATIENT
  Age: 6161 Day
  Sex: Female
  Weight: 67 kg

DRUGS (3)
  1. SEROQUEL [Suspect]
     Indication: PSYCHOTIC DISORDER
     Route: 048
     Dates: start: 20060702, end: 20061011
  2. RISPERDAL [Concomitant]
     Route: 048
  3. TRILEPTAL [Concomitant]
     Route: 048

REACTIONS (3)
  - DYSKINESIA [None]
  - SALIVARY HYPERSECRETION [None]
  - TIC [None]
